FAERS Safety Report 25840918 (Version 1)
Quarter: 2025Q3

REPORT INFORMATION
  Report Type: Spontaneous
  Country: US (occurrence: None)
  Receive Date: 20250923
  Receipt Date: 20250923
  Transmission Date: 20251021
  Serious: Yes (Hospitalization)
  Sender: FDA-CTU
  Company Number: None

PATIENT
  Age: 88 Year
  Sex: Female
  Weight: 43.65 kg

DRUGS (1)
  1. LEVOFLOXACIN [Suspect]
     Active Substance: LEVOFLOXACIN

REACTIONS (8)
  - Toxicity to various agents [None]
  - Feeling abnormal [None]
  - Hallucination [None]
  - Gait inability [None]
  - Product prescribing issue [None]
  - Pain [None]
  - Delirium [None]
  - Asthenia [None]

NARRATIVE: CASE EVENT DATE: 20250214
